FAERS Safety Report 5737361-7 (Version None)
Quarter: 2008Q2

REPORT INFORMATION
  Report Type: 
  Country: None (occurrence: None)
  Receive Date: 20080514
  Receipt Date: 20080227
  Transmission Date: 20081010
  Serious: No
  Sender: FDA-Public Use
  Company Number: US-BRISTOL-MYERS SQUIBB COMPANY-14016653

PATIENT
  Age: 61 Year
  Sex: Female

DRUGS (3)
  1. IXEMPRA FOR INJ [Suspect]
     Indication: BREAST CANCER METASTATIC
     Route: 042
     Dates: start: 20071129, end: 20071129
  2. XELODA [Suspect]
     Dates: start: 20071129, end: 20071207
  3. AUGMENTIN '125' [Concomitant]
     Route: 048

REACTIONS (3)
  - BONE PAIN [None]
  - NEUTROPENIA [None]
  - PYREXIA [None]
